FAERS Safety Report 9419608 (Version 1)
Quarter: 2013Q3

REPORT INFORMATION
  Report Type: Spontaneous
  Country: US (occurrence: US)
  Receive Date: 20130725
  Receipt Date: 20130725
  Transmission Date: 20140515
  Serious: Yes (Other)
  Sender: FDA-Public Use
  Company Number: US-SANOFI-AVENTIS-2013SA074324

PATIENT
  Age: 62 Year
  Sex: Male

DRUGS (2)
  1. LANTUS [Suspect]
     Indication: DIABETES MELLITUS
     Dosage: FREQUENCY: AT BEDTIME DOSE:30 UNIT(S)
     Route: 058
     Dates: start: 2001
  2. NOVOLOG [Suspect]
     Dosage: ON SLIDING SCALE
     Route: 065

REACTIONS (3)
  - Rotator cuff syndrome [Unknown]
  - Liver disorder [Unknown]
  - Blood glucose abnormal [Unknown]
